FAERS Safety Report 5961322-6 (Version None)
Quarter: 2008Q4

REPORT INFORMATION
  Report Type: 
  Country: None (occurrence: None)
  Receive Date: 20081121
  Receipt Date: 20081114
  Transmission Date: 20090506
  Serious: Yes (Hospitalization)
  Sender: FDA-Public Use
  Company Number: GB-ROCHE-597376

PATIENT
  Sex: Male
  Weight: 114.3 kg

DRUGS (11)
  1. ORLISTAT [Suspect]
     Indication: OBESITY
     Route: 048
     Dates: start: 20080513
  2. NOVOLOG MIX 70/30 [Concomitant]
     Dosage: NAME: NOVOMIX INSULIN. DOSE 42 UNITIS AM, 40 UNITS PM
     Route: 058
  3. LISINOPRIL [Concomitant]
     Indication: HYPERTENSION
     Route: 048
  4. ATORVASTATIN CALCIUM [Concomitant]
     Route: 048
  5. WARFARIN SODIUM [Concomitant]
     Indication: THROMBOSIS PROPHYLAXIS
     Route: 048
  6. CYANOCOBALAMIN [Concomitant]
     Route: 065
  7. FUROSEMIDE [Concomitant]
     Indication: FLUID RETENTION
     Route: 048
  8. OMEPRAZOLE [Concomitant]
     Dosage: INDICATION: GASTRIC
     Route: 048
  9. METOPROLOL TARTRATE [Concomitant]
     Dosage: INDICATION: CARDIAC, REPORTED AS METOPROLOL TRATRATE
     Route: 048
  10. AZATHIOPRINE [Concomitant]
     Dosage: INDICATION: RENAL
     Route: 048
  11. PREDNISOLONE [Concomitant]
     Indication: STEROID THERAPY
     Route: 048

REACTIONS (2)
  - FATIGUE [None]
  - OSTEOPOROSIS [None]
